FAERS Safety Report 10094482 (Version 2)
Quarter: 2014Q2

REPORT INFORMATION
  Report Type: Spontaneous
  Country: US (occurrence: US)
  Receive Date: 20140422
  Receipt Date: 20140522
  Transmission Date: 20141212
  Serious: Yes (Other)
  Sender: FDA-Public Use
  Company Number: US-SA-2014SA045842

PATIENT
  Age: 83 Year
  Sex: Female

DRUGS (3)
  1. LANTUS SOLOSTAR [Suspect]
     Indication: TYPE 2 DIABETES MELLITUS
     Route: 065
     Dates: start: 2004
  2. NOVOLOG [Concomitant]
  3. SOLOSTAR [Concomitant]

REACTIONS (2)
  - Visual acuity reduced [Unknown]
  - Inappropriate schedule of drug administration [Unknown]
